FAERS Safety Report 5354215-9 (Version None)
Quarter: 2007Q2

REPORT INFORMATION
  Report Type: 
  Country: None (occurrence: None)
  Receive Date: 20070612
  Receipt Date: 20070605
  Transmission Date: 20071010
  Serious: Yes (Hospitalization)
  Sender: FDA-Public Use
  Company Number: CA-GILEAD-2007-0012008

PATIENT
  Sex: Male
  Weight: 53.3 kg

DRUGS (19)
  1. VIREAD [Suspect]
     Indication: HIV INFECTION
     Route: 048
     Dates: start: 20070320, end: 20070407
  2. EPIVIR [Concomitant]
     Indication: HIV INFECTION
     Dates: start: 20010101, end: 20070407
  3. ZERIT [Concomitant]
     Indication: HIV INFECTION
     Route: 048
     Dates: start: 20010101
  4. SUSTIVA [Concomitant]
     Indication: HIV INFECTION
     Route: 048
     Dates: end: 20060801
  5. GLUCOBAY [Concomitant]
     Route: 048
     Dates: start: 20060724
  6. NOVO-HYDRAZIDE [Concomitant]
     Route: 048
     Dates: start: 20060724
  7. ALDACTONE [Concomitant]
  8. LASIX [Concomitant]
  9. STATEX [Concomitant]
     Route: 048
  10. MESLON [Concomitant]
     Route: 048
  11. LYRICA [Concomitant]
     Route: 048
  12. ATIVAN [Concomitant]
     Route: 048
  13. AMITRIPTYLINE HCL [Concomitant]
     Route: 048
  14. CELEBREX [Concomitant]
     Route: 048
  15. SALBUTAMOL [Concomitant]
     Route: 048
  16. FLUCONAZOLE [Concomitant]
     Route: 048
     Dates: start: 20060724
  17. FOLIC ACID [Concomitant]
     Route: 048
  18. CALCIUM CHLORIDE [Concomitant]
     Route: 048
  19. K-DUR 10 [Concomitant]
     Route: 048

REACTIONS (9)
  - CYTOLYTIC HEPATITIS [None]
  - HYPONATRAEMIA [None]
  - HYPOPHOSPHATAEMIA [None]
  - LACTIC ACIDOSIS [None]
  - MITOCHONDRIAL TOXICITY [None]
  - OESOPHAGITIS ULCERATIVE [None]
  - RENAL FAILURE ACUTE [None]
  - RHABDOMYOLYSIS [None]
  - SEPSIS [None]
